FAERS Safety Report 16277220 (Version 1)
Quarter: 2019Q2

REPORT INFORMATION
  Report Type: Report from Study
  Country: IT (occurrence: IT)
  Receive Date: 20190506
  Receipt Date: 20190506
  Transmission Date: 20190711
  Serious: Yes (Hospitalization)
  Sender: FDA-Public Use
  Company Number: IT-TAKEDA-2019TEU005201

PATIENT
  Age: 63 Year
  Sex: Male

DRUGS (2)
  1. ALOGLIPTIN, METFORMIN [Suspect]
     Active Substance: ALOGLIPTIN BENZOATE\METFORMIN HYDROCHLORIDE
     Indication: DIABETES MELLITUS
     Dosage: UNK UNK, QD
     Route: 048
  2. COMPETACT [Concomitant]
     Active Substance: METFORMIN HYDROCHLORIDE\PIOGLITAZONE HYDROCHLORIDE
     Indication: DIABETES MELLITUS

REACTIONS (5)
  - Rash papular [Unknown]
  - Lymphoedema [Unknown]
  - Chills [Unknown]
  - Toxic skin eruption [Unknown]
  - Pruritus [Unknown]

NARRATIVE: CASE EVENT DATE: 20190218
